FAERS Safety Report 19868048 (Version 1)
Quarter: 2021Q3

REPORT INFORMATION
  Report Type: Spontaneous
  Country: US (occurrence: US)
  Receive Date: 20210922
  Receipt Date: 20210922
  Transmission Date: 20211014
  Serious: No
  Sender: FDA-Public Use
  Company Number: US-PFIZER INC-2019-06710

PATIENT
  Age: 33 Year
  Sex: Male

DRUGS (2)
  1. BRAFTOVI [Suspect]
     Active Substance: ENCORAFENIB
     Indication: NEOPLASM MALIGNANT
     Dosage: 450 MG, 1X/DAY
     Route: 048
     Dates: start: 20190927
  2. MEKTOVI [Suspect]
     Active Substance: BINIMETINIB
     Indication: NEOPLASM MALIGNANT
     Dosage: 45 MG, 2X/DAY
     Route: 048
     Dates: start: 20190927

REACTIONS (3)
  - Tremor [Unknown]
  - Headache [Unknown]
  - Arthralgia [Unknown]
